FAERS Safety Report 8396173-9 (Version None)
Quarter: 2012Q2

REPORT INFORMATION
  Report Type: 
  Country: None (occurrence: None)
  Receive Date: 20120530
  Receipt Date: 20120523
  Transmission Date: 20120825
  Serious: Yes (Congenital Anomaly)
  Sender: FDA-Public Use
  Company Number: US-GLAXOSMITHKLINE-A0979368A

PATIENT
  Sex: Female
  Weight: 3 kg

DRUGS (2)
  1. PAXIL [Suspect]
     Indication: DEPRESSION
     Route: 064
  2. ZYPREXA [Concomitant]
     Indication: SCHIZOPHRENIA
     Route: 064

REACTIONS (5)
  - ATRIAL SEPTAL DEFECT [None]
  - FOETAL EXPOSURE DURING PREGNANCY [None]
  - CLEFT PALATE [None]
  - LIMB HYPOPLASIA CONGENITAL [None]
  - SINGLE FUNCTIONAL KIDNEY [None]
